FAERS Safety Report 9281012 (Version 1)
Quarter: 2013Q2

REPORT INFORMATION
  Report Type: Spontaneous
  Country: US (occurrence: US)
  Receive Date: 20130509
  Receipt Date: 20130509
  Transmission Date: 20140414
  Serious: Yes (Hospitalization)
  Sender: FDA-Public Use
  Company Number: US-GLAXOSMITHKLINE-A1022039A

PATIENT
  Age: 45 Year
  Sex: Male

DRUGS (6)
  1. SUMATRIPTAN SUCCINATE [Suspect]
     Indication: MIGRAINE
     Dosage: 100MG AS REQUIRED
     Route: 048
     Dates: start: 20130123, end: 20130228
  2. PRAVASTATIN [Concomitant]
  3. METOPROLOL [Concomitant]
  4. GABAPENTIN [Concomitant]
  5. ACIPHEX [Concomitant]
  6. PRADAXA [Concomitant]

REACTIONS (6)
  - Chest pain [Unknown]
  - Chest discomfort [Unknown]
  - Drug ineffective [Unknown]
  - Convulsion [Unknown]
  - Hypoaesthesia [Unknown]
  - Migraine [Unknown]
